FAERS Safety Report 16410769 (Version 1)
Quarter: 2019Q2

REPORT INFORMATION
  Report Type: Report from Study
  Country: DE (occurrence: DE)
  Receive Date: 20190610
  Receipt Date: 20190610
  Transmission Date: 20190711
  Serious: Yes (Hospitalization)
  Sender: FDA-Public Use
  Company Number: DE-OTSUKA-2017_006937

PATIENT
  Age: 76 Year
  Sex: Male
  Weight: 97.2 kg

DRUGS (1)
  1. DECITABINE. [Suspect]
     Active Substance: DECITABINE
     Indication: ACUTE MYELOID LEUKAEMIA
     Dosage: 44 MG, 1 IN 1 DAY
     Route: 042
     Dates: start: 20170224, end: 20170320

REACTIONS (1)
  - Lung infection [Recovered/Resolved]

NARRATIVE: CASE EVENT DATE: 20170313
